FAERS Safety Report 7554163-X (Version None)
Quarter: 2011Q2

REPORT INFORMATION
  Report Type: 
  Country: None (occurrence: None)
  Receive Date: 20110614
  Receipt Date: 20110614
  Transmission Date: 20111010
  Serious: No
  Sender: FDA-Public Use
  Company Number: None

PATIENT
  Sex: Male

DRUGS (1)
  1. ENBREL [Suspect]
     Dosage: 50 MG QW SQ
     Route: 058
     Dates: start: 20110411, end: 20110608

REACTIONS (1)
  - OEDEMA PERIPHERAL [None]
